FAERS Safety Report 13733640 (Version 4)
Quarter: 2017Q3

REPORT INFORMATION
  Report Type: Report from Study
  Country: FR (occurrence: FR)
  Receive Date: 20170707
  Receipt Date: 20170809
  Transmission Date: 20171127
  Serious: Yes (Death, Hospitalization, Other)
  Sender: FDA-Public Use
  Company Number: FR-BRISTOL-MYERS SQUIBB COMPANY-BMS-2017-040862

PATIENT
  Age: 79 Year
  Sex: Male

DRUGS (9)
  1. CORGARD [Concomitant]
     Active Substance: NADOLOL
     Indication: PRODUCT USED FOR UNKNOWN INDICATION
     Dosage: 80 MG, QD
     Route: 065
  2. AVODART [Concomitant]
     Active Substance: DUTASTERIDE
     Indication: LUNG NEOPLASM MALIGNANT
     Dosage: 0.5 MG, QD
     Route: 065
  3. NOVONORM [Concomitant]
     Active Substance: REPAGLINIDE
     Indication: PRODUCT USED FOR UNKNOWN INDICATION
     Dosage: 1 MG, UNK
     Route: 065
  4. DAFALGAN CODEINE [Concomitant]
     Active Substance: ACETAMINOPHEN\CODEINE PHOSPHATE
     Indication: PRODUCT USED FOR UNKNOWN INDICATION
     Dosage: 1 DF, QD
     Route: 065
  5. AMLOR [Concomitant]
     Active Substance: AMLODIPINE BESYLATE
     Indication: PRODUCT USED FOR UNKNOWN INDICATION
     Dosage: 50 MG, QD
     Route: 065
  6. GLUCOPHAGE [Concomitant]
     Active Substance: METFORMIN HYDROCHLORIDE
     Indication: PRODUCT USED FOR UNKNOWN INDICATION
     Dosage: 850 MG, UNK
     Route: 065
  7. NIVOLUMAB [Suspect]
     Active Substance: NIVOLUMAB
     Indication: LUNG NEOPLASM MALIGNANT
     Dosage: 195 MG, Q2WK
     Route: 042
     Dates: start: 20170425, end: 20170523
  8. OMEXEL [Concomitant]
     Active Substance: TAMSULOSIN HYDROCHLORIDE
     Indication: PRODUCT USED FOR UNKNOWN INDICATION
     Dosage: 0.4 MBQ, QD
     Route: 065
  9. HYDROCORTISONE. [Concomitant]
     Active Substance: HYDROCORTISONE
     Indication: PRODUCT USED FOR UNKNOWN INDICATION
     Dosage: 10 MG, QD
     Route: 065

REACTIONS (22)
  - Aspiration pleural cavity [Unknown]
  - Hypoalbuminaemia [Unknown]
  - Right ventricular failure [Unknown]
  - Hypoproteinaemia [Unknown]
  - Pleural effusion [Recovering/Resolving]
  - Lung infection [Not Recovered/Not Resolved]
  - Cachexia [Fatal]
  - Microcytic anaemia [Recovered/Resolved]
  - Packed red blood cell transfusion [Recovered/Resolved]
  - Lung disorder [Recovered/Resolved]
  - Cardiac failure congestive [Fatal]
  - Asthenia [Not Recovered/Not Resolved]
  - General physical health deterioration [Fatal]
  - Hypercalcaemia [Not Recovered/Not Resolved]
  - Dysuria [Unknown]
  - Nocturia [Unknown]
  - Device related infection [Not Recovered/Not Resolved]
  - Gait disturbance [Not Recovered/Not Resolved]
  - Malignant neoplasm progression [Fatal]
  - Hypokalaemia [Unknown]
  - Pelvic pain [Not Recovered/Not Resolved]
  - Pollakiuria [Unknown]

NARRATIVE: CASE EVENT DATE: 20170426
